FAERS Safety Report 4966137-3 (Version None)
Quarter: 2006Q2

REPORT INFORMATION
  Report Type: 
  Country: None (occurrence: None)
  Receive Date: 20060403
  Receipt Date: 20060328
  Transmission Date: 20061013
  Serious: Yes (Life-Threatening, Hospitalization)
  Sender: FDA-Public Use
  Company Number: 2006043290

PATIENT
  Age: 86 Year
  Sex: Male

DRUGS (4)
  1. PHENYTOIN SODIUM [Suspect]
     Indication: ILL-DEFINED DISORDER
     Dosage: 300 MG (EVERY DAY), ORAL
     Route: 048
     Dates: start: 20050201
  2. OLANZAPINE [Suspect]
     Indication: ILL-DEFINED DISORDER
     Dosage: 5 MG (5 MG, 1 IN 1 D), ORAL
     Route: 048
     Dates: start: 20050201
  3. TIOTROPIUM (TIOTROPIUM) [Suspect]
     Indication: ILL-DEFINED DISORDER
     Dosage: 18 MCG (18 MCG, 1 IN 1 D), INHALATION
     Route: 055
     Dates: start: 20050201
  4. TRIFLUSAL (TRIFLUSAL) [Suspect]
     Indication: ILL-DEFINED DISORDER
     Dosage: 300 MG (300 MG, 1 IN 1 D), ORAL
     Route: 048
     Dates: start: 20050201

REACTIONS (1)
  - CEREBRAL INFARCTION [None]
